FAERS Safety Report 9668088 (Version 4)
Quarter: 2014Q4

REPORT INFORMATION
  Report Type: Spontaneous
  Country: US (occurrence: US)
  Receive Date: 20131104
  Receipt Date: 20141003
  Transmission Date: 20150529
  Serious: Yes (Hospitalization, Other)
  Sender: FDA-Public Use
  Company Number: US-009507513-1310USA015210

PATIENT
  Sex: Female
  Weight: 72.56 kg

DRUGS (1)
  1. NUVARING [Suspect]
     Active Substance: ETHINYL ESTRADIOL\ETONOGESTREL
     Indication: CONTRACEPTION
     Dosage: UNK
     Route: 067
     Dates: start: 201006, end: 201008

REACTIONS (12)
  - Anticoagulation drug level below therapeutic [Unknown]
  - Ovulation pain [Unknown]
  - Pelvic pain [Unknown]
  - Pulmonary embolism [Unknown]
  - Menstrual disorder [Unknown]
  - Protein S deficiency [Unknown]
  - Aspiration pleural cavity [Unknown]
  - Protein C deficiency [Unknown]
  - Vaginal discharge [Unknown]
  - Pleural effusion [Recovered/Resolved]
  - Menorrhagia [Unknown]
  - Dysmenorrhoea [Unknown]

NARRATIVE: CASE EVENT DATE: 20100825
